FAERS Safety Report 5782998-2 (Version None)
Quarter: 2008Q2

REPORT INFORMATION
  Report Type: 
  Country: None (occurrence: None)
  Receive Date: 20080619
  Receipt Date: 20080619
  Transmission Date: 20081010
  Serious: Yes (Death, Hospitalization)
  Sender: FDA-Public Use
  Company Number: None

PATIENT
  Age: 36 Year
  Sex: Male
  Weight: 60 kg

DRUGS (12)
  1. SUSTIVA [Suspect]
     Indication: HIV INFECTION
     Dosage: 600 MG QHS PO
     Route: 048
     Dates: start: 20060817, end: 20080525
  2. COMBIVIR [Suspect]
     Indication: HIV INFECTION
     Dosage: 1 TABLET BID PO
     Route: 048
     Dates: start: 20060817, end: 20080416
  3. ZERIT [Suspect]
     Indication: HIV INFECTION
     Dosage: 40 MG BID PO
     Route: 048
     Dates: start: 20080512, end: 20080526
  4. EPIVIR [Suspect]
     Indication: HIV INFECTION
     Dosage: 150 MG BID PO
     Route: 048
     Dates: start: 20080512, end: 20080526
  5. STREPTOMYCIN [Concomitant]
  6. RIFAMPICIN [Concomitant]
  7. ISONIAZID [Concomitant]
  8. PYRAZINAMIDE [Concomitant]
  9. ETHAMBUTOL HYDROCHLORIDE [Concomitant]
  10. COTRIMOXAZOLE [Concomitant]
  11. FERROUS SULFATE TAB [Concomitant]
  12. BRUFEN [Concomitant]

REACTIONS (14)
  - ALANINE AMINOTRANSFERASE INCREASED [None]
  - ANAEMIA [None]
  - ASPARTATE AMINOTRANSFERASE INCREASED [None]
  - ASTHENIA [None]
  - BLOOD POTASSIUM DECREASED [None]
  - BLOOD SODIUM DECREASED [None]
  - HEPATITIS [None]
  - HYPERBILIRUBINAEMIA [None]
  - MALARIA [None]
  - PNEUMONIA FUNGAL [None]
  - PULMONARY TUBERCULOSIS [None]
  - SEPSIS [None]
  - THROMBOCYTOPENIA [None]
  - VOMITING [None]
